FAERS Safety Report 16078386 (Version 1)
Quarter: 2019Q2

REPORT INFORMATION
  Report Type: Spontaneous
  Country: US (occurrence: US)
  Receive Date: 20190315
  Receipt Date: 20190315
  Transmission Date: 20190711
  Serious: Yes (Life-Threatening, Hospitalization, Disabling)
  Sender: FDA-Public Use
  Company Number: None

PATIENT
  Age: 80 Year
  Sex: Female
  Weight: 59 kg

DRUGS (3)
  1. TOPROL XL 200 MG QD [Concomitant]
     Dates: start: 20161230, end: 20190305
  2. ELIQUIS 5 MG BID [Concomitant]
     Dates: start: 20161228, end: 20180830
  3. ELIQUIS [Suspect]
     Active Substance: APIXABAN
     Indication: ATRIAL FIBRILLATION
     Route: 048
     Dates: start: 20180830, end: 20190305

REACTIONS (3)
  - Cerebral haemorrhage [None]
  - Haematoma [None]
  - Blood pressure increased [None]

NARRATIVE: CASE EVENT DATE: 20190305
